FAERS Safety Report 12405461 (Version 2)
Quarter: 2016Q4

REPORT INFORMATION
  Report Type: Report from Study
  Country: JP (occurrence: JP)
  Receive Date: 20160525
  Receipt Date: 20161230
  Transmission Date: 20170207
  Serious: Yes (Death, Hospitalization)
  Sender: FDA-Public Use
  Company Number: JP-ASTRAZENECA-2016SE52160

PATIENT
  Age: 82 Year
  Sex: Female

DRUGS (25)
  1. NEXIUM [Suspect]
     Active Substance: ESOMEPRAZOLE MAGNESIUM
     Indication: PROPHYLAXIS AGAINST GASTROINTESTINAL ULCER
     Route: 048
     Dates: start: 20131112, end: 20151004
  2. FRANDOL [Concomitant]
     Active Substance: ISOSORBIDE DINITRATE
     Indication: ANGINA PECTORIS
     Dosage: 1.0DF AS REQUIRED
     Route: 062
     Dates: start: 20150725
  3. MAINTATE [Concomitant]
     Active Substance: BISOPROLOL FUMARATE
     Indication: HYPERTENSION
     Dosage: 1.25 MG; NUMBER OF SEPARATE DOSAGES UNKNOWN
     Route: 048
     Dates: start: 20150813, end: 20150813
  4. WARFARIN [Concomitant]
     Active Substance: WARFARIN
     Indication: TACHYCARDIA PAROXYSMAL
     Dosage: 2.5 MG; NUMBER OF SEPARATE DOSAGES UNKNOWN
     Route: 048
     Dates: start: 20150727, end: 20150813
  5. AIMIX [Concomitant]
     Active Substance: AMLODIPINE BESYLATE\IRBESARTAN
     Indication: HYPERTENSION
     Dosage: 1 DF DAILY; HIGH DOSE FORMULATION
     Route: 048
     Dates: start: 20140926, end: 20150801
  6. AMARYL [Concomitant]
     Active Substance: GLIMEPIRIDE
     Indication: DIABETES MELLITUS
     Dosage: DOSE UNKNOWN
     Route: 048
  7. BASEN [Concomitant]
     Active Substance: VOGLIBOSE
     Indication: DIABETES MELLITUS
     Dosage: 0.9 MG; NUMBER OF SEPARATE DOSAGES UNKNOWN
     Route: 048
     Dates: end: 20150905
  8. LASIX [Concomitant]
     Active Substance: FUROSEMIDE
     Indication: CARDIAC FAILURE CONGESTIVE
     Dosage: 20 MG; NUMBER OF SEPARATE DOSAGES UNKNOWN
     Route: 048
     Dates: start: 20150801
  9. MAINTATE [Concomitant]
     Active Substance: BISOPROLOL FUMARATE
     Indication: HYPERTENSION
     Dosage: 2.5 MG; NUMBER OF SEPARATE DOSAGES UNKNOWN
     Route: 048
     Dates: start: 20150814, end: 20150826
  10. AMLODIN OD [Concomitant]
     Active Substance: AMLODIPINE BESYLATE
     Indication: HYPERTENSION
     Dosage: 5 MG; NUMBER OF SEPARATE DOSAGES UNKNOWN
     Route: 048
     Dates: end: 20150925
  11. ONEALFA [Concomitant]
     Active Substance: ALFACALCIDOL
     Indication: OSTEOPOROSIS
     Dosage: DOSE UNKNOWN
     Route: 048
  12. WARFARIN [Concomitant]
     Active Substance: WARFARIN
     Indication: TACHYCARDIA PAROXYSMAL
     Dosage: 0.5 MG; NUMBER OF SEPARATE DOSAGES UNKNOWN
     Route: 048
     Dates: start: 20150904
  13. MAINTATE [Concomitant]
     Active Substance: BISOPROLOL FUMARATE
     Indication: HYPERTENSION
     Dosage: 5 MG; NUMBER OF SEPARATE DOSAGES UNKNOWN
     Route: 048
     Dates: start: 20150827
  14. ALBUMIN TANNATE [Concomitant]
     Active Substance: ALBUMIN BOVINE\TANNIC ACID
     Indication: DIARRHOEA
     Dosage: 0.5G AS REQUIRED
     Route: 048
     Dates: start: 20150904
  15. WARFARIN [Concomitant]
     Active Substance: WARFARIN
     Indication: TACHYCARDIA PAROXYSMAL
     Dosage: 1 MG; NUMBER OF SEPARATE DOSAGES UNKNOWN
     Route: 048
     Dates: start: 20150722, end: 20150723
  16. WARFARIN [Concomitant]
     Active Substance: WARFARIN
     Indication: TACHYCARDIA PAROXYSMAL
     Dosage: 2 MG; NUMBER OF SEPARATE DOSAGES UNKNOWN
     Route: 048
     Dates: start: 20150724, end: 20150726
  17. UNISIA [Concomitant]
     Active Substance: AMLODIPINE BESYLATE\CANDESARTAN CILEXETIL
     Indication: HYPERTENSION
     Route: 048
     Dates: end: 20140925
  18. LOXONIN [Concomitant]
     Active Substance: LOXOPROFEN SODIUM
     Indication: BACK PAIN
     Dosage: DOSE UNKNOWN
     Route: 062
  19. WARFARIN [Concomitant]
     Active Substance: WARFARIN
     Indication: TACHYCARDIA PAROXYSMAL
     Dosage: 2 MG; NUMBER OF SEPARATE DOSAGES UNKNOWN
     Route: 048
     Dates: start: 20150814, end: 20150820
  20. WARFARIN [Concomitant]
     Active Substance: WARFARIN
     Indication: TACHYCARDIA PAROXYSMAL
     Dosage: 1.5 MG; NUMBER OF SEPARATE DOSAGES UNKNOWN
     Route: 048
     Dates: start: 20150821, end: 20150903
  21. AVAPRO [Concomitant]
     Active Substance: IRBESARTAN
     Indication: HYPERTENSION
     Dosage: 100 MG; NUMBER OF SEPARATE DOSAGES UNKNOWN
     Route: 048
     Dates: start: 20150803, end: 20150903
  22. CRESTOR [Concomitant]
     Active Substance: ROSUVASTATIN CALCIUM
     Indication: HYPERLIPIDAEMIA
     Dosage: 2.5 MG; DOSE UNKNOWN
     Route: 048
  23. BAYASPIRIN [Concomitant]
     Active Substance: ASPIRIN
     Indication: PERIPHERAL ARTERIAL OCCLUSIVE DISEASE
     Dosage: 100 MG; NUMBER OF SEPARATE DOSAGES UNKNOWN
     Route: 065
  24. ACTOS [Concomitant]
     Active Substance: PIOGLITAZONE HYDROCHLORIDE
     Indication: DIABETES MELLITUS
     Dosage: 15 MG; NUMBER OF SEPARATE DOSAGES UNKNOWN
     Route: 048
     Dates: end: 20150802
  25. MAGMITT [Concomitant]
     Active Substance: MAGNESIUM OXIDE
     Indication: CONSTIPATION
     Dosage: 500 MG; NUMBER OF SEPARATE DOSAGES UNKNOWN
     Route: 048
     Dates: start: 20150820, end: 20150904

REACTIONS (3)
  - Death [Fatal]
  - Cholecystitis acute [Not Recovered/Not Resolved]
  - Tachycardia paroxysmal [Not Recovered/Not Resolved]

NARRATIVE: CASE EVENT DATE: 20150722
